FAERS Safety Report 12218994 (Version 1)
Quarter: 2016Q1

REPORT INFORMATION
  Report Type: Spontaneous
  Country: US (occurrence: US)
  Receive Date: 20160329
  Receipt Date: 20160329
  Transmission Date: 20160526
  Serious: No
  Sender: FDA-Public Use
  Company Number: GXBR2015US001336

PATIENT
  Sex: Male

DRUGS (2)
  1. TERAZOSIN HCL CAPSULES [Suspect]
     Active Substance: TERAZOSIN HYDROCHLORIDE
     Indication: PRODUCT USED FOR UNKNOWN INDICATION
     Dosage: 2 MG, QD
     Route: 048
     Dates: start: 2012
  2. LISINOPRIL/HYDROCHLOORTHIAZIDE [Concomitant]
     Dosage: UNK DF, UNK
     Dates: start: 2012

REACTIONS (2)
  - Abnormal dreams [Unknown]
  - Hallucination [Unknown]
